FAERS Safety Report 21520415 (Version 4)
Quarter: 2023Q1

REPORT INFORMATION
  Report Type: Report from Study
  Country: US (occurrence: US)
  Receive Date: 20221028
  Receipt Date: 20230215
  Transmission Date: 20230417
  Serious: No
  Sender: FDA-Public Use
  Company Number: US-NOVARTISTESTPH-NVSC2022US243216

PATIENT
  Sex: Female

DRUGS (1)
  1. KISQALI [Suspect]
     Active Substance: RIBOCICLIB
     Indication: Breast cancer
     Dosage: 400 MG, QD
     Route: 048

REACTIONS (8)
  - Pain [Unknown]
  - Alopecia [Unknown]
  - Nausea [Unknown]
  - Constipation [Unknown]
  - Fatigue [Not Recovered/Not Resolved]
  - Stomatitis [Not Recovered/Not Resolved]
  - Dry eye [Unknown]
  - Dry mouth [Unknown]
